FAERS Safety Report 8382697-7 (Version None)
Quarter: 2012Q2

REPORT INFORMATION
  Report Type: 
  Country: None (occurrence: None)
  Receive Date: 20120524
  Receipt Date: 20120210
  Transmission Date: 20120825
  Serious: No
  Sender: FDA-Public Use
  Company Number: US-ALLERGAN-1201986US

PATIENT
  Age: 57 Year
  Sex: Female

DRUGS (1)
  1. LASTACAFT [Suspect]
     Indication: EYE ALLERGY
     Dosage: UNK
     Route: 047
     Dates: start: 20120101

REACTIONS (4)
  - EYELID IRRITATION [None]
  - ERYTHEMA OF EYELID [None]
  - OCULAR HYPERAEMIA [None]
  - CONJUNCTIVITIS INFECTIVE [None]
